FAERS Safety Report 24059115 (Version 2)
Quarter: 2024Q3

REPORT INFORMATION
  Report Type: Spontaneous
  Country: US (occurrence: US)
  Receive Date: 20240708
  Receipt Date: 20240821
  Transmission Date: 20241017
  Serious: No
  Sender: BAXTER
  Company Number: US-BAXTER-2024BAX020777

PATIENT

DRUGS (1)
  1. MYXREDLIN [Suspect]
     Active Substance: INSULIN HUMAN
     Dosage: UNK
     Route: 065

REACTIONS (2)
  - Therapy non-responder [Unknown]
  - Blood potassium increased [Unknown]
